FAERS Safety Report 12089370 (Version 2)
Quarter: 2016Q1

REPORT INFORMATION
  Report Type: Spontaneous
  Country: NL (occurrence: NL)
  Receive Date: 20160218
  Receipt Date: 20160222
  Transmission Date: 20160526
  Serious: Yes (Hospitalization)
  Sender: FDA-Public Use
  Company Number: NL-PFIZER INC-2016083568

PATIENT
  Age: 72 Year
  Sex: Female
  Weight: 70 kg

DRUGS (10)
  1. RIVAROXABAN [Interacting]
     Active Substance: RIVAROXABAN
     Indication: ATRIAL FIBRILLATION
     Dosage: 1 DF, DAILY
     Route: 048
     Dates: start: 2014, end: 20160204
  2. COLECALCIFEROL [Concomitant]
     Active Substance: CHOLECALCIFEROL
     Dosage: 800 IU, 1X/DAY
     Route: 048
  3. BUMETANIDE. [Concomitant]
     Active Substance: BUMETANIDE
     Dosage: 1 MG, 1X/DAY
     Route: 048
  4. EZETIMIBE. [Concomitant]
     Active Substance: EZETIMIBE
     Dosage: 10 MG, 1X/DAY
     Route: 048
  5. PERINDOPRIL [Concomitant]
     Active Substance: PERINDOPRIL
     Dosage: 8 MG, 1X/DAY
     Route: 048
  6. BISOPROLOL [Concomitant]
     Active Substance: BISOPROLOL
     Dosage: 1.25 MG, 1X/DAY
     Route: 048
  7. AMIODARONE HCL [Suspect]
     Active Substance: AMIODARONE HYDROCHLORIDE
     Indication: ATRIAL FIBRILLATION
     Dosage: 0.5 DF, DAILY
     Route: 048
     Dates: start: 2014
  8. DOXYCYCLINE HYCLATE. [Interacting]
     Active Substance: DOXYCYCLINE HYCLATE
     Indication: PNEUMONIA
     Dosage: 200 MG, 1X/DAY
     Route: 048
     Dates: start: 20160203
  9. PANTOPRAZOL [Concomitant]
     Active Substance: PANTOPRAZOLE SODIUM
     Dosage: 40 MG, 1X/DAY
  10. ROSUVASTATIN CALCIUM. [Concomitant]
     Active Substance: ROSUVASTATIN CALCIUM
     Dosage: 10 MG, 1X/DAY
     Route: 048

REACTIONS (2)
  - Drug interaction [Unknown]
  - Rectal haemorrhage [Recovered/Resolved]

NARRATIVE: CASE EVENT DATE: 20160204
